FAERS Safety Report 15051442 (Version 1)
Quarter: 2018Q2

REPORT INFORMATION
  Report Type: Report from Study
  Country: None (occurrence: GB)
  Receive Date: 20180622
  Receipt Date: 20180622
  Transmission Date: 20180711
  Serious: Yes (Death, Hospitalization)
  Sender: FDA-Public Use
  Company Number: GB-ABBVIE-18K-167-2330219-00

PATIENT
  Age: 81 Year
  Sex: Male

DRUGS (2)
  1. LEFLUNOMIDE. [Concomitant]
     Active Substance: LEFLUNOMIDE
     Indication: RHEUMATOID ARTHRITIS
  2. HUMIRA [Suspect]
     Active Substance: ADALIMUMAB
     Indication: RHEUMATOID ARTHRITIS
     Route: 058

REACTIONS (11)
  - Diabetic ketoacidosis [Fatal]
  - Acute kidney injury [Unknown]
  - Pneumonia [Recovered/Resolved]
  - Dehydration [Unknown]
  - Chronic obstructive pulmonary disease [Fatal]
  - Pneumonia [Fatal]
  - Pleural effusion [Unknown]
  - Vomiting [Unknown]
  - Malaise [Unknown]
  - Empyema [Unknown]
  - Type 1 diabetes mellitus [Fatal]

NARRATIVE: CASE EVENT DATE: 20180219
